FAERS Safety Report 9472486 (Version 1)
Quarter: 2013Q3

REPORT INFORMATION
  Report Type: Spontaneous
  Country: US (occurrence: None)
  Receive Date: 20130821
  Receipt Date: 20130821
  Transmission Date: 20140515
  Serious: Yes (Disabling)
  Sender: FDA-Public Use
  Company Number: None

PATIENT
  Age: 42 Year
  Sex: Male
  Weight: 113 kg

DRUGS (4)
  1. SPRYCEL [Suspect]
     Indication: CHRONIC MYELOID LEUKAEMIA
     Dosage: 1 TAB QD ORAL
     Route: 048
     Dates: start: 20130213, end: 20130321
  2. SPRYCEL [Suspect]
     Indication: CHRONIC MYELOID LEUKAEMIA
     Dates: start: 20130321, end: 20130814
  3. LANTUS [Concomitant]
  4. NOVOLOG [Concomitant]

REACTIONS (5)
  - Headache [None]
  - Vision blurred [None]
  - Blindness [None]
  - Eye haemorrhage [None]
  - Retinal tear [None]
